FAERS Safety Report 5009718-3 (Version None)
Quarter: 2006Q2

REPORT INFORMATION
  Report Type: 
  Country: None (occurrence: None)
  Receive Date: 20060522
  Receipt Date: 20060509
  Transmission Date: 20061013
  Serious: Yes (Hospitalization)
  Sender: FDA-Public Use
  Company Number: 2006_000009

PATIENT
  Sex: Female

DRUGS (8)
  1. DEPOCYT [Suspect]
     Indication: BREAST CANCER
     Dosage: 50 MG;XL; INTH
     Route: 037
     Dates: start: 20060315, end: 20060315
  2. DEPOCYT [Suspect]
     Indication: METASTASES TO CENTRAL NERVOUS SYSTEM
     Dosage: 50 MG;XL; INTH
     Route: 037
     Dates: start: 20060315, end: 20060315
  3. DECADRON SRC [Concomitant]
  4. HERCEPTIN [Concomitant]
  5. NAVELBINE [Concomitant]
  6. METHOTREXATE [Concomitant]
  7. ZOFRAN [Concomitant]
  8. COUMADIN [Concomitant]

REACTIONS (12)
  - BALANCE DISORDER [None]
  - FEELING ABNORMAL [None]
  - GAIT DISTURBANCE [None]
  - HEADACHE [None]
  - MUSCULAR WEAKNESS [None]
  - NAUSEA [None]
  - NEUROPATHY PERIPHERAL [None]
  - NEUROTOXICITY [None]
  - PAIN [None]
  - PARANEOPLASTIC SYNDROME [None]
  - PNEUMONIA [None]
  - VOMITING [None]
